FAERS Safety Report 20039403 (Version 1)
Quarter: 2021Q4

REPORT INFORMATION
  Report Type: Spontaneous
  Country: CA (occurrence: CA)
  Receive Date: 20211105
  Receipt Date: 20211105
  Transmission Date: 20220303
  Serious: Yes (Death, Disabling, Other)
  Sender: FDA-Public Use
  Company Number: CA-TEVA-2021-CA-1971729

PATIENT
  Age: 60 Year
  Sex: Male

DRUGS (7)
  1. QUETIAPINE FUMARATE [Suspect]
     Active Substance: QUETIAPINE FUMARATE
     Indication: Product used for unknown indication
     Route: 065
  2. CHLORPROMAZINE [Suspect]
     Active Substance: CHLORPROMAZINE
     Indication: Bipolar disorder
     Dosage: 225 MILLIGRAM DAILY;
     Route: 065
  3. CHLORPROMAZINE [Suspect]
     Active Substance: CHLORPROMAZINE
     Dosage: 150 MILLIGRAM DAILY;
     Route: 065
  4. BENZTROPINE [Suspect]
     Active Substance: BENZTROPINE
     Indication: Bipolar disorder
     Route: 065
  5. LITHIUM [Suspect]
     Active Substance: LITHIUM
     Indication: Bipolar disorder
     Dosage: 900 MILLIGRAM DAILY;
     Route: 065
  6. TRIHEXYPHENIDYL [Suspect]
     Active Substance: TRIHEXYPHENIDYL
     Indication: Parkinsonism
     Dosage: 6 MILLIGRAM DAILY;
     Route: 065
  7. TRIHEXYPHENIDYL [Suspect]
     Active Substance: TRIHEXYPHENIDYL
     Dosage: 8 MILLIGRAM DAILY;
     Route: 065

REACTIONS (8)
  - Cerebral amyloid angiopathy [Fatal]
  - Confusional state [Fatal]
  - Dementia Alzheimer^s type [Fatal]
  - Dyskinesia [Fatal]
  - Hallucination [Fatal]
  - Parkinsonism [Fatal]
  - Tardive dyskinesia [Fatal]
  - Unmasking of previously unidentified disease [Fatal]
